FAERS Safety Report 15867805 (Version 1)
Quarter: 2019Q1

REPORT INFORMATION
  Report Type: Spontaneous
  Country: FR (occurrence: FR)
  Receive Date: 20190125
  Receipt Date: 20190125
  Transmission Date: 20190417
  Serious: Yes (Hospitalization)
  Sender: FDA-Public Use
  Company Number: FR-JNJFOC-20190120728

PATIENT
  Age: 88 Year
  Sex: Male

DRUGS (2)
  1. TIAPRIDAL [Suspect]
     Active Substance: TIAPRIDE HYDROCHLORIDE
     Indication: DEMENTIA
     Route: 048
     Dates: end: 20181017
  2. RISPERDAL [Suspect]
     Active Substance: RISPERIDONE
     Indication: DEMENTIA ALZHEIMER^S TYPE
     Route: 048
     Dates: end: 20181017

REACTIONS (2)
  - Agitation [Recovering/Resolving]
  - Status epilepticus [Recovering/Resolving]

NARRATIVE: CASE EVENT DATE: 20181017
